FAERS Safety Report 20117981 (Version 1)
Quarter: 2021Q4

REPORT INFORMATION
  Report Type: Spontaneous
  Country: US (occurrence: US)
  Receive Date: 20211126
  Receipt Date: 20211126
  Transmission Date: 20220303
  Serious: Yes (Life-Threatening, Hospitalization)
  Sender: FDA-Public Use
  Company Number: US-JNJFOC-20211133637

PATIENT
  Age: 25 Year
  Sex: Female
  Weight: 52 kg

DRUGS (4)
  1. TYLENOL WITH CODEINE [Suspect]
     Active Substance: ACETAMINOPHEN\CODEINE PHOSPHATE
     Indication: Migraine
     Dosage: ACETAMINOPHEN 300 MG CODEINE PHOSPHATE 30 MG; AT A TOTAL DOSE OF 21,000 MG/ 2,100 MG (70 TABLETS) OV
     Route: 048
     Dates: start: 199912
  2. VICODIN [Suspect]
     Active Substance: ACETAMINOPHEN\HYDROCODONE BITARTRATE
     Indication: Migraine
     Dosage: ACETAMINOPHEN 660 MG / HYDROCODONE BITARTRATE 10 MG TABLETS, UNKNOWN DAILY DOSE, INGESTED 30 TABLETS
     Route: 065
     Dates: end: 19991223
  3. ULTRAM [Concomitant]
     Active Substance: TRAMADOL HYDROCHLORIDE
     Indication: Product used for unknown indication
     Dosage: 100 MG FOR 60 DAYS
     Route: 065
     Dates: end: 19991223
  4. ELAVIL [Concomitant]
     Active Substance: AMITRIPTYLINE HYDROCHLORIDE
     Indication: Product used for unknown indication
     Dosage: 25 MG FOR 3 MONTHS
     Route: 065
     Dates: end: 19991201

REACTIONS (6)
  - Acute hepatic failure [Unknown]
  - Seizure [Unknown]
  - Blood creatinine increased [Recovered/Resolved]
  - Blood urea increased [Unknown]
  - Product administration error [Unknown]
  - Accidental overdose [Unknown]
